FAERS Safety Report 21237799 (Version 2)
Quarter: 2022Q3

REPORT INFORMATION
  Report Type: Spontaneous
  Country: US (occurrence: US)
  Receive Date: 20220822
  Receipt Date: 20220830
  Transmission Date: 20221027
  Serious: Yes (Other)
  Sender: FDA-Public Use
  Company Number: US-BRISTOL-MYERS SQUIBB COMPANY-2022-093296

PATIENT
  Age: 78 Year
  Sex: Male

DRUGS (8)
  1. POMALYST [Suspect]
     Active Substance: POMALIDOMIDE
     Indication: Plasma cell myeloma
     Dosage: FREQ - DAILY*21 DAYS
     Route: 048
     Dates: start: 20220119
  2. POMALYST [Suspect]
     Active Substance: POMALIDOMIDE
     Dosage: DAILY
     Route: 048
     Dates: start: 20220122, end: 20220822
  3. XARELTO [Concomitant]
     Active Substance: RIVAROXABAN
     Indication: Product used for unknown indication
     Dosage: POWDER FOR SOLUTION
     Route: 065
  4. VITAMINS NOS [Concomitant]
     Active Substance: VITAMINS
     Indication: Product used for unknown indication
     Dosage: 50 + TABS 220 S
     Route: 065
  5. ATORVASTATIN [Concomitant]
     Active Substance: ATORVASTATIN
     Indication: Product used for unknown indication
     Route: 065
  6. HYDROCHLOROTHIAZIDE [Concomitant]
     Active Substance: HYDROCHLOROTHIAZIDE
     Indication: Product used for unknown indication
     Route: 065
  7. DEXAMETHASONE [Concomitant]
     Active Substance: DEXAMETHASONE
     Indication: Product used for unknown indication
     Route: 065
  8. KYPROLIS [Concomitant]
     Active Substance: CARFILZOMIB
     Indication: Product used for unknown indication
     Route: 065

REACTIONS (4)
  - Plasma cell myeloma [Unknown]
  - Muscle spasms [Unknown]
  - Abdominal discomfort [Unknown]
  - Nausea [Unknown]

NARRATIVE: CASE EVENT DATE: 20220818
